FAERS Safety Report 10902069 (Version 1)
Quarter: 2015Q1

REPORT INFORMATION
  Report Type: Spontaneous
  Country: US (occurrence: US)
  Receive Date: 20150310
  Receipt Date: 20150310
  Transmission Date: 20150721
  Serious: Yes (Death, Hospitalization)
  Sender: FDA-Public Use
  Company Number: PHHY2015US023984

PATIENT
  Age: 53 Year
  Sex: Male

DRUGS (10)
  1. CALCITONIN, SALMON [Suspect]
     Active Substance: CALCITONIN SALMON
     Indication: LYMPHADENOPATHY
  2. CETUXIMAB [Suspect]
     Active Substance: CETUXIMAB
     Indication: METASTATIC SQUAMOUS CELL CARCINOMA
     Dosage: 250 MG/M2, QW
     Route: 065
  3. PAMIDRONATE [Suspect]
     Active Substance: PAMIDRONATE DISODIUM
     Indication: HYPERCALCAEMIA
  4. PAMIDRONATE [Suspect]
     Active Substance: PAMIDRONATE DISODIUM
     Indication: METASTATIC SQUAMOUS CELL CARCINOMA
     Route: 065
  5. PACLITAXEL. [Suspect]
     Active Substance: PACLITAXEL
     Indication: METASTATIC SQUAMOUS CELL CARCINOMA
     Dosage: 80 MG/M2, QW
     Route: 065
  6. CALCITONIN, SALMON [Suspect]
     Active Substance: CALCITONIN SALMON
     Indication: HYPERCALCAEMIA
     Route: 065
  7. PAMIDRONATE [Suspect]
     Active Substance: PAMIDRONATE DISODIUM
     Indication: LYMPHADENOPATHY
  8. CARBOPLATIN. [Suspect]
     Active Substance: CARBOPLATIN
     Indication: METASTATIC SQUAMOUS CELL CARCINOMA
     Route: 065
  9. PAMIDRONATE [Suspect]
     Active Substance: PAMIDRONATE DISODIUM
     Indication: METASTATIC NEOPLASM
  10. CALCITONIN, SALMON [Suspect]
     Active Substance: CALCITONIN SALMON
     Indication: METASTATIC NEOPLASM

REACTIONS (17)
  - Leukocytosis [Unknown]
  - Lethargy [Unknown]
  - Performance status decreased [Unknown]
  - Sepsis [Unknown]
  - Pneumonia [Unknown]
  - Ascites [Unknown]
  - Disorientation [Unknown]
  - Abdominal distension [Unknown]
  - Peritonitis bacterial [Unknown]
  - Peritoneal disorder [Unknown]
  - Nausea [Unknown]
  - Hypercalcaemia [Recovered/Resolved]
  - Vomiting [Unknown]
  - Dyspnoea [Unknown]
  - Diarrhoea [Unknown]
  - Gastroenteritis [Unknown]
  - Death [Fatal]
